FAERS Safety Report 23304633 (Version 1)
Quarter: 2023Q4

REPORT INFORMATION
  Report Type: Spontaneous
  Country: US (occurrence: None)
  Receive Date: 20231218
  Receipt Date: 20231218
  Transmission Date: 20240110
  Serious: Yes (Death, Hospitalization)
  Sender: FDA-Public Use
  Company Number: 2023A285652

PATIENT
  Age: 32 Year
  Sex: Male

DRUGS (16)
  1. OMEPRAZOLE [Suspect]
     Active Substance: OMEPRAZOLE
     Route: 048
  2. ACETAMINOPHEN [Suspect]
     Active Substance: ACETAMINOPHEN
  3. BACLOFEN [Suspect]
     Active Substance: BACLOFEN
  4. DOXEPIN [Suspect]
     Active Substance: DOXEPIN
  5. LAMOTRIGINE [Suspect]
     Active Substance: LAMOTRIGINE
  6. SERTRALINE [Suspect]
     Active Substance: SERTRALINE HYDROCHLORIDE
  7. PREGABALIN [Suspect]
     Active Substance: PREGABALIN
  8. TOPIRAMATE [Suspect]
     Active Substance: TOPIRAMATE
  9. HYDROCHLOROTHIAZIDE [Suspect]
     Active Substance: HYDROCHLOROTHIAZIDE
  10. DEUTETRABENAZINE [Suspect]
     Active Substance: DEUTETRABENAZINE
  11. CELECOXIB [Suspect]
     Active Substance: CELECOXIB
  12. EZETIMIBE [Suspect]
     Active Substance: EZETIMIBE
  13. LEVOCETIRIZINE [Suspect]
     Active Substance: LEVOCETIRIZINE
  14. DOCUSATE [Suspect]
     Active Substance: DOCUSATE
  15. MELATONIN [Suspect]
     Active Substance: MELATONIN
  16. VITAMIN D [Suspect]
     Active Substance: VITAMIN D NOS

REACTIONS (2)
  - Toxicity to various agents [Fatal]
  - Completed suicide [Fatal]
